FAERS Safety Report 11518310 (Version 4)
Quarter: 2015Q4

REPORT INFORMATION
  Report Type: Spontaneous
  Country: US (occurrence: None)
  Receive Date: 20150917
  Receipt Date: 20151012
  Transmission Date: 20160304
  Serious: Yes (Other)
  Sender: FDA-Public Use
  Company Number: US-MDT-ADR-2015-01802

PATIENT
  Age: 31 Year
  Sex: Female

DRUGS (2)
  1. BACLOFEN INTRATHECAL - 2000 MCG/ML [Suspect]
     Active Substance: BACLOFEN
     Indication: MUSCLE SPASTICITY
     Dosage: 1600 MCG/DAY
  2. ^MANY^ MEDICATIONS (NOT SPECIFIED) [Suspect]
     Active Substance: UNSPECIFIED INGREDIENT

REACTIONS (4)
  - Seizure [None]
  - Muscle spasticity [None]
  - Device breakage [None]
  - Cerebrospinal fluid leakage [None]
